FAERS Safety Report 9109566 (Version 1)
Quarter: 2013Q1

REPORT INFORMATION
  Report Type: Report from Study
  Country: US (occurrence: US)
  Receive Date: 20130222
  Receipt Date: 20130222
  Transmission Date: 20140127
  Serious: Yes (Hospitalization, Other)
  Sender: FDA-Public Use
  Company Number: PHHY2013US016595

PATIENT
  Age: 7 Year
  Sex: Male
  Weight: 30.3 kg

DRUGS (9)
  1. ICL670A [Suspect]
     Indication: SICKLE CELL ANAEMIA
     Dosage: 750 MG, QD
  2. HYDROXYUREA [Concomitant]
     Indication: SICKLE CELL ANAEMIA
     Dosage: 1000 MG, QD
  3. FOLIC ACID [Concomitant]
     Indication: SICKLE CELL ANAEMIA
     Dosage: 4 MG, DAILY
  4. MIRALAX [Concomitant]
     Indication: CONSTIPATION
     Dosage: 4 PACKET DAILY
  5. SYMBICORT [Concomitant]
     Indication: ASTHMA
     Dosage: TWO PACKETS, BID
  6. MOTRIN [Concomitant]
     Dosage: 100 MG/ 5 ML
  7. GLYCOLAX [Concomitant]
     Dosage: 17 GM PODER IN PACKET
  8. TYLENOL [Concomitant]
     Dosage: 12 MG, UNK
     Route: 048
  9. ACETAMINOPHEN [Concomitant]
     Dosage: UNK UKN, UNK
     Route: 048

REACTIONS (7)
  - Sickle cell anaemia with crisis [Recovering/Resolving]
  - Pain [Recovering/Resolving]
  - Dyspnoea [Recovered/Resolved]
  - Back pain [Not Recovered/Not Resolved]
  - Chest pain [Not Recovered/Not Resolved]
  - Cardiomegaly [Unknown]
  - Human rhinovirus test positive [Unknown]
